FAERS Safety Report 4352080-X (Version None)
Quarter: 2004Q2

REPORT INFORMATION
  Report Type: 
  Country: None (occurrence: None)
  Receive Date: 20040429
  Receipt Date: 20040213
  Transmission Date: 20050107
  Serious: No
  Sender: FDA-Public Use
  Company Number: 2004-113404-NL

PATIENT
  Age: 38 Year
  Sex: Female
  Weight: 90.9 kg

DRUGS (6)
  1. NUVARING [Suspect]
     Indication: MENSTRUAL DISORDER
     Dosage: DF DAILY VAGINAL
     Route: 067
     Dates: start: 20040111, end: 20040111
  2. EFFEXOR [Concomitant]
  3. MULTI-VITAMINS [Concomitant]
  4. CALCIUM SUPPLEMENT [Concomitant]
  5. IBUPROFEN [Concomitant]
  6. PROTONIX [Concomitant]

REACTIONS (2)
  - NAUSEA [None]
  - PRURITUS GENERALISED [None]
